FAERS Safety Report 25256664 (Version 1)
Quarter: 2025Q2

REPORT INFORMATION
  Report Type: Spontaneous
  Country: SE (occurrence: SE)
  Receive Date: 20250430
  Receipt Date: 20250430
  Transmission Date: 20250717
  Serious: Yes (Disabling)
  Sender: ALCON
  Company Number: None

PATIENT

DRUGS (1)
  1. NETARSUDIL [Suspect]
     Active Substance: NETARSUDIL
     Indication: Open angle glaucoma
     Route: 047
     Dates: start: 20250314, end: 20250410

REACTIONS (4)
  - Paradoxical drug reaction [Not Recovered/Not Resolved]
  - Intraocular pressure increased [Not Recovered/Not Resolved]
  - Eye pain [Unknown]
  - Ocular hyperaemia [Unknown]

NARRATIVE: CASE EVENT DATE: 20250101
